FAERS Safety Report 9149615 (Version 1)
Quarter: 2013Q1

REPORT INFORMATION
  Report Type: Spontaneous
  Country: US (occurrence: None)
  Receive Date: 20130228
  Receipt Date: 20130228
  Transmission Date: 20140127
  Serious: No
  Sender: FDA-Public Use
  Company Number: None

PATIENT
  Age: 53 Year
  Sex: Female
  Weight: 80.29 kg

DRUGS (2)
  1. ASPIRIN [Suspect]
     Indication: OSTEOARTHRITIS
     Dates: start: 201110, end: 201302
  2. ASPIRIN [Suspect]
     Indication: PAIN
     Dates: start: 201110, end: 201302

REACTIONS (2)
  - Incorrect dose administered [None]
  - Drug hypersensitivity [None]
